FAERS Safety Report 11993576 (Version 1)
Quarter: 2016Q1

REPORT INFORMATION
  Report Type: Spontaneous
  Country: US (occurrence: US)
  Receive Date: 20160203
  Receipt Date: 20160203
  Transmission Date: 20160526
  Serious: No
  Sender: FDA-Public Use
  Company Number: US-PFIZER INC-2016015367

PATIENT
  Age: 77 Year
  Sex: Male
  Weight: 99.79 kg

DRUGS (1)
  1. CELEBREX [Suspect]
     Active Substance: CELECOXIB
     Indication: SPONDYLITIS
     Dosage: 100 MG, 2X/DAY

REACTIONS (1)
  - Road traffic accident [Unknown]
